FAERS Safety Report 21806254 (Version 2)
Quarter: 2023Q1

REPORT INFORMATION
  Report Type: Spontaneous
  Country: US (occurrence: US)
  Receive Date: 20230102
  Receipt Date: 20230302
  Transmission Date: 20230418
  Serious: No
  Sender: FDA-Public Use
  Company Number: US-BRISTOL-MYERS SQUIBB COMPANY-2023-000069

PATIENT
  Age: 65 Year
  Sex: Female
  Weight: 55.34 kg

DRUGS (1)
  1. REVLIMID [Suspect]
     Active Substance: LENALIDOMIDE
     Indication: Plasma cell myeloma
     Dosage: FREQ: 21D ON 7D OFF
     Route: 048

REACTIONS (8)
  - Asthenia [Unknown]
  - Decreased appetite [Unknown]
  - Nausea [Unknown]
  - Diarrhoea [Unknown]
  - Vomiting [Unknown]
  - Insomnia [Unknown]
  - Fatigue [Unknown]
  - Weight decreased [Unknown]
